FAERS Safety Report 13013862 (Version 1)
Quarter: 2016Q4

REPORT INFORMATION
  Report Type: Spontaneous
  Country: US (occurrence: US)
  Receive Date: 20161209
  Receipt Date: 20161209
  Transmission Date: 20170207
  Serious: No
  Sender: FDA-Public Use
  Company Number: US-FERRINGPH-2016FE00755

PATIENT
  Age: 39 Year
  Sex: Female
  Weight: 42.63 kg

DRUGS (4)
  1. MENOPUR [Suspect]
     Active Substance: FOLLICLE STIMULATING HORMONE BETA POLYPEPTIDE\LUTROPIN ALFA
     Indication: IN VITRO FERTILISATION
     Dosage: 150 UNITS, DAILY
     Route: 058
     Dates: start: 201602, end: 201602
  2. LUPRON [Concomitant]
     Active Substance: LEUPROLIDE ACETATE
     Indication: IN VITRO FERTILISATION
  3. MENOPUR [Suspect]
     Active Substance: FOLLICLE STIMULATING HORMONE BETA POLYPEPTIDE\LUTROPIN ALFA
     Dosage: UNK
     Dates: start: 2015, end: 2015
  4. GONAL-F [Concomitant]
     Active Substance: FOLLITROPIN
     Indication: IN VITRO FERTILISATION

REACTIONS (1)
  - Drug ineffective [Unknown]

NARRATIVE: CASE EVENT DATE: 201602
